FAERS Safety Report 24234570 (Version 1)
Quarter: 2024Q3

REPORT INFORMATION
  Report Type: Spontaneous
  Country: US (occurrence: US)
  Receive Date: 20240821
  Receipt Date: 20240821
  Transmission Date: 20241017
  Serious: No
  Sender: PFIZER
  Company Number: US-PFIZER INC-PV202400108783

PATIENT
  Age: 80 Year
  Sex: Male

DRUGS (1)
  1. TUKYSA [Suspect]
     Active Substance: TUCATINIB
     Dosage: TUKYSA 150 MG 1 TABLET TWICE A DAY. TUKYSA 50 MG 2 TABLETS TWICE A DAY

REACTIONS (1)
  - Blood pressure abnormal [Unknown]
